FAERS Safety Report 15612985 (Version 1)
Quarter: 2018Q4

REPORT INFORMATION
  Report Type: Report from Study
  Country: GB (occurrence: GB)
  Receive Date: 20181113
  Receipt Date: 20181113
  Transmission Date: 20190205
  Serious: Yes (Life-Threatening)
  Sender: FDA-Public Use
  Company Number: GB-PFIZER INC-2018464506

PATIENT
  Sex: Female

DRUGS (4)
  1. CALCIUM FOLINATE [Suspect]
     Active Substance: LEUCOVORIN CALCIUM
     Indication: OVARIAN CANCER
     Dosage: 20 MG/M2, CYCLIC (BOLUS D1, 2 + 3))
     Route: 042
  2. CISPLATIN. [Suspect]
     Active Substance: CISPLATIN
     Indication: OVARIAN CANCER
     Dosage: 35 MG/M2, CYCLIC (1 L NORMAL SALINE OVER 4 H D1 + 2)
     Route: 042
  3. FLUOROURACIL. [Suspect]
     Active Substance: FLUOROURACIL
     Indication: OVARIAN CANCER
     Dosage: 400 MG/M2, CYCLIC (IN 100 ML NORMAL SALINE OVER 30 MINS D1, 2 + 3))
     Route: 042
  4. EPIRUBICIN HCL [Suspect]
     Active Substance: EPIRUBICIN HYDROCHLORIDE
     Indication: OVARIAN CANCER
     Dosage: 50 MG/M2, CYCLIC (BOLUS D1)
     Route: 042

REACTIONS (1)
  - Neutropenic sepsis [Unknown]
